FAERS Safety Report 5482745-8 (Version None)
Quarter: 2007Q4

REPORT INFORMATION
  Report Type: 
  Country: None (occurrence: None)
  Receive Date: 20071011
  Receipt Date: 20070928
  Transmission Date: 20080405
  Serious: Yes (Other)
  Sender: FDA-Public Use
  Company Number: US-PFIZER INC-2007060087

PATIENT
  Sex: Male
  Weight: 81.6 kg

DRUGS (2)
  1. BEXTRA [Suspect]
     Indication: MUSCULOSKELETAL PAIN
     Route: 048
  2. BEXTRA [Suspect]
     Indication: OSTEOARTHRITIS

REACTIONS (1)
  - MYOCARDIAL INFARCTION [None]
